FAERS Safety Report 8281574-X (Version None)
Quarter: 2012Q2

REPORT INFORMATION
  Report Type: 
  Country: None (occurrence: None)
  Receive Date: 20120413
  Receipt Date: 20120404
  Transmission Date: 20120825
  Serious: No
  Sender: FDA-Public Use
  Company Number: US-JNJFOC-20120403345

PATIENT
  Sex: Male
  Weight: 79.83 kg

DRUGS (9)
  1. FENTANYL-100 [Suspect]
     Indication: BACK PAIN
     Route: 062
     Dates: start: 20120301, end: 20120301
  2. CRESTOR [Concomitant]
     Indication: BLOOD CHOLESTEROL INCREASED
     Route: 048
     Dates: start: 20070101
  3. FENTANYL-100 [Suspect]
     Route: 062
     Dates: start: 20050101
  4. FENTANYL-100 [Suspect]
     Route: 065
     Dates: start: 20120301, end: 20120301
  5. FENTANYL-100 [Suspect]
     Route: 062
     Dates: start: 20120201
  6. FENTANYL-100 [Suspect]
     Route: 062
  7. FENTANYL-100 [Suspect]
     Route: 062
     Dates: start: 20120201, end: 20120201
  8. FENTANYL-100 [Suspect]
     Indication: BACK PAIN
     Route: 062
  9. FENTANYL-100 [Suspect]
     Route: 062
     Dates: end: 20120201

REACTIONS (5)
  - DRUG DISPENSING ERROR [None]
  - EXPIRED DRUG ADMINISTERED [None]
  - BLOOD TRIGLYCERIDES INCREASED [None]
  - GASTROOESOPHAGEAL REFLUX DISEASE [None]
  - BACK PAIN [None]
